FAERS Safety Report 8821497 (Version 1)
Quarter: 2012Q4

REPORT INFORMATION
  Report Type: 
  Country: BE (occurrence: BE)
  Receive Date: 20121002
  Receipt Date: 20121002
  Transmission Date: 20130627
  Serious: Yes (Other)
  Sender: FDA-Public Use
  Company Number: BE-ELI_LILLY_AND_COMPANY-BE201209006509

PATIENT
  Age: 30 Year
  Sex: Male

DRUGS (2)
  1. ZYPADHERA [Suspect]
     Dosage: 300 mg, 2/M
  2. CANNABIS [Concomitant]

REACTIONS (4)
  - Agitation [Recovered/Resolved]
  - Aggression [Recovered/Resolved]
  - Irritability [Recovered/Resolved]
  - Prescribed overdose [Unknown]
